FAERS Safety Report 4867701-2 (Version None)
Quarter: 2005Q4

REPORT INFORMATION
  Report Type: 
  Country: None (occurrence: None)
  Receive Date: 20051228
  Receipt Date: 20051214
  Transmission Date: 20060501
  Serious: Yes (Hospitalization)
  Sender: FDA-Public Use
  Company Number: US-JNJFOC-20050902589

PATIENT
  Sex: Male
  Weight: 113.4 kg

DRUGS (9)
  1. REMICADE [Suspect]
     Route: 042
  2. REMICADE [Suspect]
     Route: 042
  3. REMICADE [Suspect]
     Indication: RHEUMATOID ARTHRITIS
     Route: 042
  4. COUMADIN [Suspect]
  5. PREDNISONE 50MG TAB [Concomitant]
  6. METHOTREXATE [Concomitant]
  7. PAIN KILLERS [Concomitant]
     Indication: BACK PAIN
  8. GLUCOPHAGE [Concomitant]
     Indication: DIABETES MELLITUS
  9. MAVIK [Concomitant]
     Indication: HYPERTENSION

REACTIONS (2)
  - DEEP VEIN THROMBOSIS [None]
  - HAEMORRHAGE [None]
